FAERS Safety Report 7797134-0 (Version None)
Quarter: 2011Q4

REPORT INFORMATION
  Report Type: 
  Country: None (occurrence: None)
  Receive Date: 20111005
  Receipt Date: 20110928
  Transmission Date: 20120403
  Serious: Yes (Hospitalization)
  Sender: FDA-Public Use
  Company Number: BR-ROCHE-760754

PATIENT
  Sex: Female
  Weight: 87.8 kg

DRUGS (6)
  1. ROFERON-A [Suspect]
     Indication: RENAL CANCER
     Dosage: DOSE: 6MU
     Route: 058
     Dates: start: 20090708, end: 20110213
  2. AVASTIN [Suspect]
     Indication: RENAL CANCER
     Dosage: REPORTED AS EVRY OTHER WEEK
     Route: 042
  3. ATENOLOL [Concomitant]
  4. AVASTIN [Suspect]
     Dosage: FREQUENCY : EVERY OTHER WEEK
     Route: 042
     Dates: start: 20090908, end: 20110201
  5. LOSARTAN POTASSIUM [Concomitant]
  6. LIPANOR [Concomitant]

REACTIONS (2)
  - RENAL FAILURE [None]
  - DIARRHOEA [None]
